FAERS Safety Report 5286650-1 (Version None)
Quarter: 2007Q2

REPORT INFORMATION
  Report Type: 
  Country: None (occurrence: None)
  Receive Date: 20070404
  Receipt Date: 20070330
  Transmission Date: 20071010
  Serious: Yes (Life-Threatening, Hospitalization, Other)
  Sender: FDA-Public Use
  Company Number: GB-GLAXOSMITHKLINE-B0464849A

PATIENT
  Age: 64 Year
  Sex: Female

DRUGS (9)
  1. AUGMENTIN '125' [Suspect]
     Indication: DRUG USE FOR UNKNOWN INDICATION
     Dosage: 1.2G PER DAY
     Route: 042
     Dates: start: 20070317, end: 20070319
  2. MAGNESIUM [Suspect]
     Indication: DRUG USE FOR UNKNOWN INDICATION
     Dosage: 20MMOL PER DAY
     Route: 042
     Dates: start: 20070319
  3. CIPROFLOXACIN [Concomitant]
     Dosage: 250MG PER DAY
     Route: 048
     Dates: start: 20070220, end: 20070225
  4. DICLOFENAC SODIUM [Concomitant]
     Dosage: 50MG PER DAY
     Route: 048
     Dates: start: 20060126, end: 20070319
  5. ENOXAPARIN SODIUM [Concomitant]
     Dosage: 20MG PER DAY
     Route: 058
     Dates: start: 20070316
  6. LACTULOSE [Concomitant]
     Dosage: 10ML PER DAY
     Route: 048
     Dates: start: 20061102
  7. ACETAMINOPHEN [Concomitant]
     Dosage: 1G PER DAY
     Route: 042
     Dates: start: 20070316
  8. PAROXETINE HCL [Concomitant]
     Dosage: 20MG PER DAY
     Route: 048
     Dates: start: 20041109
  9. SENNA [Concomitant]
     Route: 048
     Dates: start: 20070316

REACTIONS (3)
  - ANAPHYLACTIC REACTION [None]
  - BLOOD PRESSURE SYSTOLIC DECREASED [None]
  - URTICARIA [None]
